FAERS Safety Report 14269355 (Version 1)
Quarter: 2017Q4

REPORT INFORMATION
  Report Type: Spontaneous
  Country: DK (occurrence: DK)
  Receive Date: 20171211
  Receipt Date: 20171211
  Transmission Date: 20180321
  Serious: Yes (Other)
  Sender: FDA-Public Use
  Company Number: DK-OTSUKA-2017_019112

PATIENT

DRUGS (5)
  1. FYCOMPA [Concomitant]
     Active Substance: PERAMPANEL
     Indication: EPILEPSY
     Dosage: 2 MG, IN EVENING
     Route: 065
  2. ABILIFY [Suspect]
     Active Substance: ARIPIPRAZOLE
     Indication: PRODUCT USED FOR UNKNOWN INDICATION
     Dosage: 30 MG, UNK (20 MG IN MORNING)
     Route: 065
  3. ABILIFY [Suspect]
     Active Substance: ARIPIPRAZOLE
     Indication: PRODUCT USED FOR UNKNOWN INDICATION
     Dosage: 15 MG, UNK (20 MG IN MORNING)
     Route: 065
  4. ABILIFY [Suspect]
     Active Substance: ARIPIPRAZOLE
     Indication: PRODUCT USED FOR UNKNOWN INDICATION
     Dosage: 20 MG, UNK (20 MG IN MORNING)
     Route: 065
  5. VIMPAT [Concomitant]
     Active Substance: LACOSAMIDE
     Indication: CONVULSION PROPHYLAXIS
     Dosage: 300 MG IN MORNING AND SAME DOSE IN EVENING
     Route: 065

REACTIONS (5)
  - Suicide attempt [Unknown]
  - Aggression [Unknown]
  - Performance enhancing product use [Unknown]
  - Overdose [Unknown]
  - Psychotic symptom [Unknown]

NARRATIVE: CASE EVENT DATE: 2008
